FAERS Safety Report 22115454 (Version 1)
Quarter: 2023Q1

REPORT INFORMATION
  Report Type: Spontaneous
  Country: US (occurrence: US)
  Receive Date: 20230320
  Receipt Date: 20230320
  Transmission Date: 20230418
  Serious: Yes (Death, Other)
  Sender: FDA-Public Use
  Company Number: US-APOTEX-2023AP005101

PATIENT
  Sex: Male

DRUGS (5)
  1. CELECOXIB [Suspect]
     Active Substance: CELECOXIB
     Indication: Neuroblastoma recurrent
     Dosage: 500 MILLIGRAM/SQ. METER, QD
     Route: 065
  2. ETOPOSIDE [Concomitant]
     Active Substance: ETOPOSIDE
     Indication: Neuroblastoma recurrent
     Dosage: 50 MILLIGRAM/SQ. METER, QD (DAYS 1-21)
     Route: 048
  3. ETOPOSIDE [Concomitant]
     Active Substance: ETOPOSIDE
     Dosage: REDUCED DOSE
     Route: 048
  4. CYCLOPHOSPHAMIDE [Concomitant]
     Active Substance: CYCLOPHOSPHAMIDE
     Indication: Neuroblastoma recurrent
     Dosage: 75 MILLIGRAM/SQ. METER, QD (DAYS 22-41)
     Route: 048
  5. CYCLOPHOSPHAMIDE [Concomitant]
     Active Substance: CYCLOPHOSPHAMIDE
     Dosage: REDUCED DOSE
     Route: 048

REACTIONS (5)
  - Pneumonia aspiration [Fatal]
  - Seizure [Fatal]
  - Acute kidney injury [Fatal]
  - Gastritis haemorrhagic [Fatal]
  - Haematemesis [Fatal]
